FAERS Safety Report 9252569 (Version 1)
Quarter: 2013Q2

REPORT INFORMATION
  Report Type: Spontaneous
  Country: US (occurrence: US)
  Receive Date: 20130424
  Receipt Date: 20130424
  Transmission Date: 20140414
  Serious: Yes (Hospitalization)
  Sender: FDA-Public Use
  Company Number: US-GLAXOSMITHKLINE-A0690190A

PATIENT
  Age: 63 Year
  Sex: Male
  Weight: 111.4 kg

DRUGS (5)
  1. AVANDIA [Suspect]
     Indication: TYPE 2 DIABETES MELLITUS
     Dosage: 8MG PER DAY
     Route: 048
     Dates: start: 2000, end: 200703
  2. METFORMIN [Concomitant]
  3. DIABETA [Concomitant]
  4. EFFEXOR [Concomitant]
  5. GLYBURIDE [Concomitant]

REACTIONS (3)
  - Myocardial infarction [Not Recovered/Not Resolved]
  - Arrhythmia [Unknown]
  - Cardiac disorder [Unknown]
